FAERS Safety Report 22283234 (Version 3)
Quarter: 2023Q2

REPORT INFORMATION
  Report Type: Spontaneous
  Country: CN (occurrence: CN)
  Receive Date: 20230504
  Receipt Date: 20230616
  Transmission Date: 20230721
  Serious: Yes (Life-Threatening, Other)
  Sender: FDA-Public Use
  Company Number: CN-MLMSERVICE-20230420-4237661-1

PATIENT
  Age: 32 Year
  Sex: Female

DRUGS (11)
  1. METHYLPREDNISOLONE [Suspect]
     Active Substance: METHYLPREDNISOLONE
     Indication: Gingival bleeding
     Dosage: 24 MG
     Dates: start: 202101, end: 202103
  2. METHYLPREDNISOLONE [Suspect]
     Active Substance: METHYLPREDNISOLONE
     Indication: Immune thrombocytopenia
     Dosage: 80 MG
     Dates: start: 20210422, end: 2021
  3. METHYLPREDNISOLONE [Suspect]
     Active Substance: METHYLPREDNISOLONE
     Indication: Ecchymosis
     Dosage: 16 MG, 1X/DAY
     Dates: start: 2021, end: 2021
  4. METHYLPREDNISOLONE [Suspect]
     Active Substance: METHYLPREDNISOLONE
     Dosage: 80 MG, 1X/DAY
     Dates: start: 202108, end: 2021
  5. CYCLOSPORINE [Suspect]
     Active Substance: CYCLOSPORINE
     Indication: Immune thrombocytopenia
     Dosage: UNK
     Dates: start: 202101, end: 202103
  6. CYCLOSPORINE [Suspect]
     Active Substance: CYCLOSPORINE
     Dosage: 150 MG, 2X/DAY (FREQ:12 H;TWICE 1 DAY)
     Route: 048
     Dates: start: 20210906, end: 2021
  7. PREDNISONE [Suspect]
     Active Substance: PREDNISONE
     Indication: Immune thrombocytopenia
     Dosage: 20 MG
     Dates: start: 202011, end: 202101
  8. NORETHINDRONE [Suspect]
     Active Substance: NORETHINDRONE
     Indication: Vaginal haemorrhage
     Dosage: 5 G, 3X/DAY (FREQ:8 H)
     Dates: start: 20210906
  9. HUMAN IMMUNOGLOBULIN G [Suspect]
     Active Substance: HUMAN IMMUNOGLOBULIN G
     Indication: Ecchymosis
     Dosage: UNK, FOR 5 DAYS
     Dates: start: 20210422
  10. HUMAN IMMUNOGLOBULIN G [Suspect]
     Active Substance: HUMAN IMMUNOGLOBULIN G
     Indication: Gingival bleeding
     Dosage: 0.4 G/KG FOR 5 DAYS
     Dates: start: 202108
  11. ELTROMBOPAG [Suspect]
     Active Substance: ELTROMBOPAG
     Indication: Immune thrombocytopenia
     Dosage: 25 MG
     Dates: start: 202108

REACTIONS (5)
  - Subarachnoid haemorrhage [Unknown]
  - Cerebral vasoconstriction [Unknown]
  - Superior sagittal sinus thrombosis [Unknown]
  - Cerebral venous sinus thrombosis [Unknown]
  - Hypernatraemia [Unknown]

NARRATIVE: CASE EVENT DATE: 20210101
